FAERS Safety Report 6601138-0 (Version None)
Quarter: 2010Q1

REPORT INFORMATION
  Report Type: 
  Country: None (occurrence: None)
  Receive Date: 20100217
  Receipt Date: 20100126
  Transmission Date: 20100710
  Serious: Yes (Other)
  Sender: FDA-Public Use
  Company Number: 2009AL007865

PATIENT
  Sex: Male

DRUGS (6)
  1. ACETAMINOPHEN AND CODEINE PHOSPHATE [Suspect]
     Dosage: 225 MG; PO
     Route: 048
  2. VENLAFAXINE HCL [Suspect]
     Dates: start: 20080101
  3. CLOZARIL [Concomitant]
  4. METHADONE HYDROCHLORIDE [Concomitant]
  5. AMYTRIPTYLINE [Concomitant]
  6. EPILIM [Concomitant]

REACTIONS (5)
  - CONVULSION [None]
  - DEPRESSED LEVEL OF CONSCIOUSNESS [None]
  - FALL [None]
  - GAIT DISTURBANCE [None]
  - MUSCLE TWITCHING [None]
